FAERS Safety Report 11021315 (Version 1)
Quarter: 2015Q2

REPORT INFORMATION
  Report Type: Spontaneous
  Country: FR (occurrence: FR)
  Receive Date: 20150413
  Receipt Date: 20150413
  Transmission Date: 20150821
  Serious: Yes (Hospitalization, Other)
  Sender: FDA-Public Use
  Company Number: FR-SA-2015SA045643

PATIENT
  Age: 5 Month
  Sex: Female
  Weight: 5 kg

DRUGS (3)
  1. ROTATEQ [Suspect]
     Active Substance: HUMAN ROTAVIRUS A TYPE G1P7(5) STRAIN WI79 LIVE ANTIGEN\HUMAN ROTAVIRUS A TYPE G2P7(5) STRAIN SC2 LIVE ANTIGEN\HUMAN ROTAVIRUS A TYPE G3P7(5) STRAIN WI78 LIVE ANTIGEN\HUMAN ROTAVIRUS A TYPE G4P7(5) STRAIN BRB LIVE ANTIGEN\HUMAN ROTAVIRUS A TYPE G6P1A(8) STRAIN WI79 LIVE ANTIGEN
     Indication: IMMUNISATION
     Route: 048
     Dates: start: 20130628, end: 20130628
  2. TUBERTEST [Suspect]
     Active Substance: TUBERCULIN PURIFIED PROTEIN DERIVATIVE
     Indication: TUBERCULIN TEST
     Route: 023
     Dates: start: 20130625, end: 20130625
  3. BCG VACCINE USP [Suspect]
     Active Substance: BACILLUS CALMETTE-GUERIN SUBSTRAIN TICE LIVE ANTIGEN
     Indication: IMMUNISATION
     Route: 023
     Dates: start: 20130628, end: 20130628

REACTIONS (14)
  - Vaccination site abscess [Recovered/Resolved]
  - Vaccination site erythema [Recovered/Resolved]
  - Decreased appetite [Unknown]
  - Eye inflammation [Recovered/Resolved]
  - Insomnia [Recovered/Resolved]
  - Hodgkin^s disease [Unknown]
  - Lymphadenitis [Not Recovered/Not Resolved]
  - Lymphadenopathy [Not Recovered/Not Resolved]
  - Seizure [Unknown]
  - Cough [Not Recovered/Not Resolved]
  - Crying [Recovered/Resolved]
  - Diarrhoea [Not Recovered/Not Resolved]
  - Abdominal pain [Not Recovered/Not Resolved]
  - Vaccination site discharge [Recovered/Resolved]

NARRATIVE: CASE EVENT DATE: 20130626
